FAERS Safety Report 11347815 (Version 1)
Quarter: 2015Q3

REPORT INFORMATION
  Report Type: Spontaneous
  Country: US (occurrence: US)
  Receive Date: 20150803
  Receipt Date: 20150803
  Transmission Date: 20151125
  Serious: No
  Sender: FDA-Public Use
  Company Number: US-ELI_LILLY_AND_COMPANY-US201110005951

PATIENT
  Age: 50 Year
  Sex: Male

DRUGS (4)
  1. ZYPREXA [Suspect]
     Active Substance: OLANZAPINE
     Dosage: 0.25 DF, QD
  2. ZYPREXA [Suspect]
     Active Substance: OLANZAPINE
     Indication: BIPOLAR II DISORDER
     Dosage: 52.5 MG, QD
     Dates: start: 2001
  3. LAMICTAL [Concomitant]
     Active Substance: LAMOTRIGINE
  4. TEGRETOL [Concomitant]
     Active Substance: CARBAMAZEPINE

REACTIONS (7)
  - Drug tolerance [Unknown]
  - Malaise [Unknown]
  - Abdominal discomfort [Unknown]
  - Initial insomnia [Unknown]
  - Wrong technique in product usage process [Not Recovered/Not Resolved]
  - Prescribed overdose [Not Recovered/Not Resolved]
  - Anxiety [Recovered/Resolved]

NARRATIVE: CASE EVENT DATE: 2001
